FAERS Safety Report 4336967-X (Version None)
Quarter: 2004Q1

REPORT INFORMATION
  Report Type: 
  Country: None (occurrence: None)
  Receive Date: 20040329
  Receipt Date: 20040206
  Transmission Date: 20041129
  Serious: No
  Sender: FDA-Public Use
  Company Number: USA040258697

PATIENT
  Sex: Female

DRUGS (15)
  1. STRATTERA [Suspect]
     Dosage: 40 MG/3 DAY
     Dates: start: 20031101
  2. WELLBUTRIN [Concomitant]
  3. TOPAMAX [Concomitant]
  4. SYNTHROID [Concomitant]
  5. ACETAMINOPHEN AND HYDROCODONE BITARTRATE [Concomitant]
  6. MIACALCIN (CALCINOIN, SALMON) [Concomitant]
  7. TAMOXIFEN CITRATE [Concomitant]
  8. HYDROXYZINE [Concomitant]
  9. POTASSIUM [Concomitant]
  10. ZYRTEC [Concomitant]
  11. CLARITIN [Concomitant]
  12. PEPCID [Concomitant]
  13. VITAMINS NOS [Concomitant]
  14. FOLIC ACID [Concomitant]
  15. IRON [Concomitant]

REACTIONS (3)
  - BLOOD IRON DECREASED [None]
  - HEPATIC ENZYME INCREASED [None]
  - PRESCRIBED OVERDOSE [None]
